FAERS Safety Report 18259188 (Version 2)
Quarter: 2020Q4

REPORT INFORMATION
  Report Type: Spontaneous
  Country: US (occurrence: US)
  Receive Date: 20200911
  Receipt Date: 20201009
  Transmission Date: 20210113
  Serious: Yes (Hospitalization)
  Sender: FDA-Public Use
  Company Number: US-GILEAD-2020-0494643

PATIENT
  Age: 67 Year
  Sex: Male
  Weight: 108 kg

DRUGS (37)
  1. ENOXAPARIN [Concomitant]
     Active Substance: ENOXAPARIN
  2. ONDANSETRON [Concomitant]
     Active Substance: ONDANSETRON
  3. SENNA [SENNA ALEXANDRINA] [Concomitant]
     Active Substance: SENNA LEAF
  4. SODIUM CHLORIDE. [Concomitant]
     Active Substance: SODIUM CHLORIDE
  5. VANCOMYCIN [Concomitant]
     Active Substance: VANCOMYCIN
  6. ZOVIRAX [Concomitant]
     Active Substance: ACYCLOVIR
  7. ALTEPLASE. [Concomitant]
     Active Substance: ALTEPLASE
  8. DIPHENHYDRAMINE. [Concomitant]
     Active Substance: DIPHENHYDRAMINE
  9. LORAZEPAM. [Concomitant]
     Active Substance: LORAZEPAM
  10. MELATONIN [Concomitant]
     Active Substance: MELATONIN
  11. OXYCODONE [Concomitant]
     Active Substance: OXYCODONE
  12. YESCARTA [Suspect]
     Active Substance: AXICABTAGENE CILOLEUCEL
     Indication: DIFFUSE LARGE B-CELL LYMPHOMA
     Dosage: 68 ML
     Route: 042
     Dates: start: 20200507, end: 20200507
  13. HUMALOG [Concomitant]
     Active Substance: INSULIN LISPRO
  14. MIRALAX [Concomitant]
     Active Substance: POLYETHYLENE GLYCOL 3350
  15. PROTONIX [OMEPRAZOLE] [Concomitant]
     Active Substance: OMEPRAZOLE
  16. ACETAMINOPHEN. [Concomitant]
     Active Substance: ACETAMINOPHEN
  17. DEXTROSE IN WATER [Concomitant]
     Active Substance: DEXTROSE\WATER
  18. MAGNESIUM SULFATE. [Concomitant]
     Active Substance: MAGNESIUM SULFATE
  19. MICAFUNGIN. [Concomitant]
     Active Substance: MICAFUNGIN SODIUM
  20. NORMAL SALINE [Concomitant]
     Active Substance: SODIUM CHLORIDE
  21. POTASSIUM CHLORIDE. [Concomitant]
     Active Substance: POTASSIUM CHLORIDE
  22. PROCHLORPERAZINE. [Concomitant]
     Active Substance: PROCHLORPERAZINE
  23. SWEEN [Concomitant]
  24. TUMS [Concomitant]
     Active Substance: CALCIUM CARBONATE
  25. HEPARIN [Concomitant]
     Active Substance: HEPARIN SODIUM
  26. BIOTENE DRY MOUTH ORAL RINSE [Concomitant]
     Active Substance: CETYLPYRIDINIUM CHLORIDE
  27. CLINIMIX E [Concomitant]
     Active Substance: ALANINE\AMINO ACIDS\ARGININE\CALCIUM CHLORIDE\DEXTROSE\GLYCINE\HISTIDINE\ISOLEUCINE\LEUCINE\LYSINE\MAGNESIUM CHLORIDE\METHIONINE\PHENYLALANINE\POTASSIUM PHOSPHATE, DIBASIC\PROLINE\PROLINE, DL-\SERINE\SODIUM ACETATE\SODIUM CHLORIDE\THREONINE\TRYPTOPHAN\TYROSINE\VALINE
  28. PREDNISONE. [Concomitant]
     Active Substance: PREDNISONE
  29. AMBIEN [Concomitant]
     Active Substance: ZOLPIDEM TARTRATE
  30. CHOLECALCIFEROL [Concomitant]
     Active Substance: CHOLECALCIFEROL
  31. IMODIUM [Concomitant]
     Active Substance: LOPERAMIDE HYDROCHLORIDE
  32. CENTRUM SILVER +50 [Concomitant]
     Active Substance: MINERALS\VITAMINS
  33. CLOTRIMAZOLE. [Concomitant]
     Active Substance: CLOTRIMAZOLE
  34. DILAUDID [Concomitant]
     Active Substance: HYDROMORPHONE HYDROCHLORIDE
  35. GLUCOSE [Concomitant]
     Active Substance: DEXTROSE
  36. LEVAQUIN [Concomitant]
     Active Substance: LEVOFLOXACIN
  37. SEPTRA [Concomitant]
     Active Substance: SULFAMETHOXAZOLE\TRIMETHOPRIM

REACTIONS (1)
  - Neurotoxicity [Recovered/Resolved]

NARRATIVE: CASE EVENT DATE: 20200516
